FAERS Safety Report 6703548-X (Version None)
Quarter: 2010Q2

REPORT INFORMATION
  Report Type: 
  Country: None (occurrence: None)
  Receive Date: 20100430
  Receipt Date: 20100423
  Transmission Date: 20101027
  Serious: Yes (Hospitalization)
  Sender: FDA-Public Use
  Company Number: PHHY2010FR25715

PATIENT
  Sex: Female

DRUGS (6)
  1. EXELON [Suspect]
     Indication: DEMENTIA ALZHEIMER'S TYPE
     Dosage: UNK
     Route: 062
     Dates: start: 20091001, end: 20100108
  2. PLAVIX [Concomitant]
     Indication: CARDIOVASCULAR EVENT PROPHYLAXIS
     Dosage: 1 DF, QD
  3. TAHOR [Concomitant]
     Indication: CARDIOVASCULAR EVENT PROPHYLAXIS
     Dosage: 1 DF, QD
  4. SERESTA [Concomitant]
     Indication: ANXIETY
  5. ZOPICLONE [Concomitant]
     Indication: INSOMNIA
     Dosage: 75 MG
  6. MEMANTINE HCL [Concomitant]
     Indication: DEMENTIA ALZHEIMER'S TYPE
     Dosage: 2 DF, QD

REACTIONS (5)
  - DIARRHOEA HAEMORRHAGIC [None]
  - HYPERGLYCAEMIA [None]
  - PRESYNCOPE [None]
  - TREMOR [None]
  - VOMITING [None]
